FAERS Safety Report 11175604 (Version 1)
Quarter: 2015Q2

REPORT INFORMATION
  Report Type: Spontaneous
  Country: GB (occurrence: GB)
  Receive Date: 20150609
  Receipt Date: 20150609
  Transmission Date: 20150821
  Serious: Yes (Other)
  Sender: FDA-Public Use
  Company Number: GB-GLAXOSMITHKLINE INC.-B0935295A

PATIENT
  Age: 27 Year
  Sex: Female
  Weight: 63 kg

DRUGS (6)
  1. PROGUANIL [Suspect]
     Active Substance: PROGUANIL
  2. ATOVAQUONE. [Suspect]
     Active Substance: ATOVAQUONE
  3. FOLIC ACID. [Suspect]
     Active Substance: FOLIC ACID
  4. PROGUANIL [Suspect]
     Active Substance: PROGUANIL
     Indication: MALARIA PROPHYLAXIS
  5. YELLOW FEVER VACCINE NOS [Suspect]
     Active Substance: YELLOW FEVER VIRUS STRAIN 17D-204 LIVE ANTIGEN
     Indication: IMMUNISATION
     Dosage: .5 ML
     Route: 065
     Dates: start: 20130805, end: 20130805
  6. ATOVAQUONE. [Suspect]
     Active Substance: ATOVAQUONE

REACTIONS (4)
  - Live birth [Unknown]
  - Vaginal haemorrhage [Unknown]
  - Ventouse extraction [Unknown]
  - Exposure during pregnancy [Unknown]

NARRATIVE: CASE EVENT DATE: 20140427
